FAERS Safety Report 17880213 (Version 1)
Quarter: 2020Q2

REPORT INFORMATION
  Report Type: Spontaneous
  Country: US (occurrence: US)
  Receive Date: 20200609
  Receipt Date: 20200609
  Transmission Date: 20200714
  Serious: No
  Sender: FDA-Public Use
  Company Number: None

PATIENT
  Sex: Female

DRUGS (3)
  1. OCTREOTIDE 100MCG/ML SDV 1ML (30) [Suspect]
     Active Substance: OCTREOTIDE
     Dosage: ?          OTHER STRENGTH:100MCG/ML;?
  2. OCTREOTIDE 100MCG/ML SDV 1ML [Suspect]
     Active Substance: OCTREOTIDE
     Indication: DIARRHOEA
     Dosage: ?          OTHER STRENGTH:100MCG/ML;?
     Route: 058
     Dates: start: 20200522
  3. OCTREOTIDE 100MCG/ML SDV 1ML (2) [Suspect]
     Active Substance: OCTREOTIDE
     Indication: DIARRHOEA
     Dosage: ?          OTHER STRENGTH:100MCG/ML;?

REACTIONS (1)
  - Post procedural infection [None]
